FAERS Safety Report 8767521 (Version 2)
Quarter: 2013Q1

REPORT INFORMATION
  Report Type: Spontaneous
  Country: BR (occurrence: BR)
  Receive Date: 20120904
  Receipt Date: 20130221
  Transmission Date: 20140127
  Serious: Yes (Hospitalization, Other)
  Sender: FDA-Public Use
  Company Number: PHHY2012BR076216

PATIENT
  Sex: Male

DRUGS (2)
  1. DIOVAN [Suspect]
     Indication: HYPERTENSION
     Dosage: 1 DF, QD
     Route: 048
  2. DIGOXINE [Concomitant]
     Indication: CARDIAC FAILURE
     Dosage: 0.5 DF, QD

REACTIONS (3)
  - Cerebrovascular accident [Recovered/Resolved with Sequelae]
  - Memory impairment [Recovered/Resolved]
  - Hypokinesia [Recovered/Resolved]
